FAERS Safety Report 4483511-2 (Version None)
Quarter: 2004Q4

REPORT INFORMATION
  Report Type: 
  Country: None (occurrence: None)
  Receive Date: 20041025
  Receipt Date: 20041013
  Transmission Date: 20050328
  Serious: Yes (Other)
  Sender: FDA-Public Use
  Company Number: US-JNJFOC-20041004662

PATIENT
  Sex: Female
  Weight: 106.14 kg

DRUGS (17)
  1. REMICADE [Suspect]
     Dosage: 4 VIALS
     Route: 042
  2. REMICADE [Suspect]
     Indication: RHEUMATOID ARTHRITIS
     Route: 042
  3. METHOTREXATE [Concomitant]
  4. MONOPRIL [Concomitant]
     Indication: HYPERTENSION
  5. GLUCOTROL XL [Concomitant]
  6. NORVASC [Concomitant]
     Indication: HYPERTENSION
  7. FOLIC ACID [Concomitant]
  8. MULTI-VITAMIN [Concomitant]
  9. MULTI-VITAMIN [Concomitant]
  10. MULTI-VITAMIN [Concomitant]
  11. MULTI-VITAMIN [Concomitant]
  12. MULTI-VITAMIN [Concomitant]
  13. MULTI-VITAMIN [Concomitant]
  14. MULTI-VITAMIN [Concomitant]
  15. MULTI-VITAMIN [Concomitant]
  16. CALCIUM MAGNESIUM [Concomitant]
  17. CALCIUM MAGNESIUM [Concomitant]

REACTIONS (1)
  - RENAL NEOPLASM [None]
